FAERS Safety Report 7312800-9 (Version None)
Quarter: 2011Q1

REPORT INFORMATION
  Report Type: 
  Country: None (occurrence: None)
  Receive Date: 20110224
  Receipt Date: 20101019
  Transmission Date: 20110831
  Serious: No
  Sender: FDA-Public Use
  Company Number: US-MYLANLABS-2010S1019208

PATIENT
  Age: 84 Year
  Sex: Male
  Weight: 64.41 kg

DRUGS (9)
  1. WARFARIN SODIUM [Interacting]
     Route: 048
     Dates: start: 20100701
  2. PRAVASTATIN [Concomitant]
  3. LORAZEPAM [Concomitant]
     Dates: start: 20101001
  4. METOPROLOL TARTRATE [Suspect]
     Indication: BLOOD PRESSURE INCREASED
     Route: 048
     Dates: start: 20070101
  5. WARFARIN SODIUM [Interacting]
     Indication: ARRHYTHMIA
     Route: 048
     Dates: start: 20100701
  6. FISH OIL [Concomitant]
  7. MULTIVITAMIN [Concomitant]
  8. Q10 [Concomitant]
  9. AMIODARONE [Concomitant]
     Indication: ARRHYTHMIA
     Dates: start: 20100701

REACTIONS (5)
  - DRUG INTERACTION [None]
  - BALANCE DISORDER [None]
  - SYNCOPE [None]
  - DISORIENTATION [None]
  - WEIGHT DECREASED [None]
